FAERS Safety Report 19751278 (Version 1)
Quarter: 2021Q3

REPORT INFORMATION
  Report Type: Spontaneous
  Country: CA (occurrence: CA)
  Receive Date: 20210826
  Receipt Date: 20210826
  Transmission Date: 20211014
  Serious: Yes (Other)
  Sender: FDA-Public Use
  Company Number: CA-SAMSUNG BIOEPIS-SB-2020-38496

PATIENT
  Age: 66 Year
  Sex: Male
  Weight: 108 kg

DRUGS (9)
  1. MEZAVANT [Concomitant]
     Active Substance: MESALAMINE
     Indication: PRODUCT USED FOR UNKNOWN INDICATION
     Dosage: ALSO KNOWN AS MESALAMINE
     Route: 065
  2. MEZAVANT [Concomitant]
     Active Substance: MESALAMINE
     Dosage: ALSO KNOWN AS MESALAMINE
     Route: 065
  3. MEZAVANT [Concomitant]
     Active Substance: MESALAMINE
     Dosage: ALSO KNOWN AS MESALAMINE
     Route: 065
  4. SULFASALAZINE. [Concomitant]
     Active Substance: SULFASALAZINE
     Route: 048
  5. MEZAVANT [Concomitant]
     Active Substance: MESALAMINE
     Dosage: ALSO KNOWN AS MESALAMINE
     Route: 065
  6. MEZAVANT [Concomitant]
     Active Substance: MESALAMINE
     Dosage: ALSO KNOWN AS MESALAMINE
     Route: 048
  7. SULFASALAZINE. [Concomitant]
     Active Substance: SULFASALAZINE
     Indication: PRODUCT USED FOR UNKNOWN INDICATION
     Route: 065
  8. INFLIXIMAB [Suspect]
     Active Substance: INFLIXIMAB
     Indication: COLITIS ULCERATIVE
     Route: 042
  9. MEZAVANT [Concomitant]
     Active Substance: MESALAMINE
     Dosage: TABLET (DELAYED AND EXTENDED RELEASE), ALSO KNOWN AS MESALAMINE
     Route: 065

REACTIONS (10)
  - Inflammation [Unknown]
  - Intentional product use issue [Unknown]
  - Weight increased [Unknown]
  - Inappropriate schedule of product administration [Unknown]
  - Blood pressure increased [Unknown]
  - Therapeutic response shortened [Unknown]
  - Product use issue [Unknown]
  - Condition aggravated [Unknown]
  - Rectal haemorrhage [Unknown]
  - Off label use [Unknown]
